FAERS Safety Report 24786039 (Version 1)
Quarter: 2024Q4

REPORT INFORMATION
  Report Type: Spontaneous
  Country: US (occurrence: US)
  Receive Date: 20241229
  Receipt Date: 20241229
  Transmission Date: 20250115
  Serious: Yes (Other)
  Sender: BAYER HEALTHCARE PHARMACEUTICALS INC.
  Company Number: US-BAYER-2023A141674

PATIENT
  Age: 56 Year
  Sex: Male

DRUGS (5)
  1. JIVI [Suspect]
     Active Substance: DAMOCTOCOG ALFA PEGOL
     Dosage: JIVI 2000IU: INFUSE~ 4800 UNITS
  2. JIVI [Suspect]
     Active Substance: DAMOCTOCOG ALFA PEGOL
     Dosage: 2 DF
  3. JIVI [Suspect]
     Active Substance: DAMOCTOCOG ALFA PEGOL
     Dosage: 1 DF
  4. JIVI [Suspect]
     Active Substance: DAMOCTOCOG ALFA PEGOL
     Dosage: JIVI  2080/3194IU: INFUSE~ 4800 UNITS THREE TIMES A WEEK AND AS NEEDED
  5. JIVI [Suspect]
     Active Substance: DAMOCTOCOG ALFA PEGOL
     Dosage: 1 DF

REACTIONS (2)
  - Haemarthrosis [Unknown]
  - Haemarthrosis [None]

NARRATIVE: CASE EVENT DATE: 20230918
